FAERS Safety Report 17196633 (Version 1)
Quarter: 2019Q4

REPORT INFORMATION
  Report Type: Spontaneous
  Country: DE (occurrence: DE)
  Receive Date: 20191224
  Receipt Date: 20191224
  Transmission Date: 20200122
  Serious: Yes (Hospitalization, Other)
  Sender: FDA-Public Use
  Company Number: DE-PFIZER INC-2019549429

PATIENT
  Age: 14 Year
  Sex: Female
  Weight: 58 kg

DRUGS (1)
  1. IBUPROFEN. [Suspect]
     Active Substance: IBUPROFEN
     Indication: SUICIDAL IDEATION
     Dosage: 6400 MG, SINGLE (TOTAL OF 16 SEPERATED DOSES)
     Dates: start: 20181118, end: 20181118

REACTIONS (3)
  - Blood creatinine increased [Recovered/Resolved]
  - Suicidal ideation [Unknown]
  - Intentional overdose [Unknown]

NARRATIVE: CASE EVENT DATE: 20181118
